FAERS Safety Report 12591850 (Version 3)
Quarter: 2018Q2

REPORT INFORMATION
  Report Type: Report from Study
  Country: CA (occurrence: CA)
  Receive Date: 20160726
  Receipt Date: 20180620
  Transmission Date: 20180711
  Serious: Yes (Other)
  Sender: FDA-Public Use
  Company Number: PHHY2012CA016116

PATIENT
  Sex: Female

DRUGS (3)
  1. FAMPYRA [Concomitant]
     Active Substance: DALFAMPRIDINE
     Indication: PRODUCT USED FOR UNKNOWN INDICATION
     Dosage: UNK
     Route: 065
  2. DITROPAN [Concomitant]
     Active Substance: OXYBUTYNIN CHLORIDE
     Indication: PRODUCT USED FOR UNKNOWN INDICATION
     Dosage: UNK
     Route: 065
  3. GILENYA [Suspect]
     Active Substance: FINGOLIMOD HYDROCHLORIDE
     Indication: MULTIPLE SCLEROSIS
     Dosage: 0.5 MG, QD
     Route: 048
     Dates: start: 20120106, end: 20180511

REACTIONS (12)
  - Diplopia [Unknown]
  - Visual acuity reduced [Unknown]
  - Fatigue [Unknown]
  - Vision blurred [Unknown]
  - Musculoskeletal disorder [Unknown]
  - Muscular weakness [Unknown]
  - Nystagmus [Unknown]
  - Lymphocyte count decreased [Unknown]
  - Dysmetria [Unknown]
  - Leukopenia [Unknown]
  - Paraesthesia [Unknown]
  - Ataxia [Unknown]

NARRATIVE: CASE EVENT DATE: 2015
